FAERS Safety Report 9889730 (Version 1)
Quarter: 2014Q1

REPORT INFORMATION
  Report Type: Spontaneous
  Country: US (occurrence: US)
  Receive Date: 20140211
  Receipt Date: 20140211
  Transmission Date: 20141002
  Serious: Yes (Hospitalization, Other)
  Sender: FDA-Public Use
  Company Number: US-PFIZER INC-2014036114

PATIENT
  Age: 54 Year
  Sex: Male
  Weight: 73.9 kg

DRUGS (6)
  1. VENLAFAXINE HCL [Suspect]
     Dosage: 150 MG, 2X/DAY
  2. EFFEXOR XR [Suspect]
     Dosage: UNK
     Route: 048
  3. EFFEXOR [Suspect]
     Dosage: 75 MG, 1X/DAY
     Route: 048
     Dates: start: 201401, end: 201401
  4. EFFEXOR [Suspect]
     Dosage: 150 MG, 1X/DAY
     Route: 048
     Dates: start: 201401
  5. VALIUM [Concomitant]
     Dosage: 10 MG, 3X/DAY
  6. LEXAPRO [Concomitant]
     Dosage: 80 MG, 1X/DAY

REACTIONS (11)
  - Drug dispensing error [Unknown]
  - Loss of consciousness [Unknown]
  - Fatigue [Unknown]
  - Somnolence [Unknown]
  - Apathy [Unknown]
  - Fall [Unknown]
  - Decreased appetite [Recovering/Resolving]
  - Eating disorder [Unknown]
  - Weight decreased [Unknown]
  - Blood cholesterol increased [Unknown]
  - Drug ineffective [Unknown]
